FAERS Safety Report 10779973 (Version 1)
Quarter: 2015Q1

REPORT INFORMATION
  Report Type: Spontaneous
  Country: US (occurrence: None)
  Receive Date: 20150206
  Receipt Date: 20150206
  Transmission Date: 20150721
  Serious: Yes (Other)
  Sender: FDA-Public Use
  Company Number: None

PATIENT
  Age: 82 Year
  Sex: Female

DRUGS (12)
  1. CHERATUSSIN AC [Concomitant]
     Active Substance: CODEINE PHOSPHATE\GUAIFENESIN
  2. LETAIRIS [Suspect]
     Active Substance: AMBRISENTAN
     Indication: PULMONARY HYPERTENSION
     Route: 048
  3. CLOBETASOL (TEMOVATE) [Concomitant]
  4. ISOSORBIDE MONONITRATE (IMDUR) [Concomitant]
  5. TRIAMCINOLONE ACETONIDE (ARISTOCORT/KENALOG) [Concomitant]
  6. TIOTROPIUM (SPIRIVA) [Concomitant]
  7. OMEPRAZOLE MAGNESIUM. [Concomitant]
     Active Substance: OMEPRAZOLE MAGNESIUM
  8. LACTOBACILLUS ACIDOPHILUS [Concomitant]
     Active Substance: LACTOBACILLUS ACIDOPHILUS
  9. CHOLECALCIFEROL, VITAMIN D3, (VITAMIN D3) [Concomitant]
  10. BUMETANIDE (BUMEX) [Concomitant]
  11. ACETAMINOPHEN (MAPAP) [Concomitant]
  12. DESONIDE (DESOWEN/TRIDESILON) [Concomitant]

REACTIONS (2)
  - Peripheral swelling [None]
  - Nausea [None]

NARRATIVE: CASE EVENT DATE: 201411
